FAERS Safety Report 9913663 (Version 1)
Quarter: 2014Q1

REPORT INFORMATION
  Report Type: Spontaneous
  Country: US (occurrence: US)
  Receive Date: 20140220
  Receipt Date: 20140220
  Transmission Date: 20141002
  Serious: No
  Sender: FDA-Public Use
  Company Number: US-BAYER-2014-025560

PATIENT
  Sex: Female

DRUGS (2)
  1. MIRENA [Suspect]
     Indication: ENDOMETRIOSIS
     Dosage: UNK
     Dates: start: 20140212
  2. DEPO PROVERA [Concomitant]

REACTIONS (2)
  - Off label use [None]
  - Off label use [Not Recovered/Not Resolved]
